FAERS Safety Report 7351948-X (Version None)
Quarter: 2011Q1

REPORT INFORMATION
  Report Type: 
  Country: None (occurrence: None)
  Receive Date: 20110310
  Receipt Date: 20110310
  Transmission Date: 20110831
  Serious: No
  Sender: FDA-Public Use
  Company Number: None

PATIENT
  Sex: Male
  Weight: 88.4514 kg

DRUGS (1)
  1. ANDRODERM [Suspect]
     Indication: BLOOD TESTOSTERONE DECREASED
     Dosage: 5 MG ONCE PER DAY PATCH TRANSDERMAL
     Route: 062

REACTIONS (4)
  - RASH [None]
  - URTICARIA [None]
  - PRURITUS [None]
  - PAIN [None]
